FAERS Safety Report 5225824-2 (Version None)
Quarter: 2007Q1

REPORT INFORMATION
  Report Type: 
  Country: None (occurrence: None)
  Receive Date: 20070201
  Receipt Date: 20070122
  Transmission Date: 20070707
  Serious: Yes (Hospitalization)
  Sender: FDA-Public Use
  Company Number: PHBS2007JP00985

PATIENT
  Age: 1 Year
  Sex: Male

DRUGS (1)
  1. ZADITEN [Suspect]
     Indication: DERMATITIS ALLERGIC
     Dosage: 0.6 G, UNK
     Route: 048
     Dates: start: 20060225, end: 20070112

REACTIONS (2)
  - ALANINE AMINOTRANSFERASE INCREASED [None]
  - ASPARTATE AMINOTRANSFERASE INCREASED [None]
